FAERS Safety Report 7424219-0 (Version None)
Quarter: 2011Q2

REPORT INFORMATION
  Report Type: 
  Country: None (occurrence: None)
  Receive Date: 20110419
  Receipt Date: 20110318
  Transmission Date: 20111010
  Serious: Yes (Death, Congenital Anomaly)
  Sender: FDA-Public Use
  Company Number: FR-BAYER-2011-027386

PATIENT
  Sex: Female

DRUGS (1)
  1. MIRENA [Suspect]
     Dosage: 20 ?G, CONT
     Route: 064

REACTIONS (5)
  - CONGENITAL GENITAL MALFORMATION [None]
  - RETROGNATHIA [None]
  - LIMB MALFORMATION [None]
  - FOETAL MALFORMATION [None]
  - ANOMALY OF EXTERNAL EAR CONGENITAL [None]
